FAERS Safety Report 20091182 (Version 4)
Quarter: 2022Q2

REPORT INFORMATION
  Report Type: Spontaneous
  Country: GB (occurrence: GB)
  Receive Date: 20211119
  Receipt Date: 20220516
  Transmission Date: 20220721
  Serious: Yes (Other)
  Sender: FDA-Public Use
  Company Number: GB-EMA-DD-20181004-KSEVHUMANWT-094808

PATIENT

DRUGS (13)
  1. COCODAMOL [Suspect]
     Active Substance: ACETAMINOPHEN\CODEINE PHOSPHATE
     Indication: Pain
     Dosage: UNK DF
     Route: 048
  2. COCODAMOL [Suspect]
     Active Substance: ACETAMINOPHEN\CODEINE PHOSPHATE
     Dosage: 2 DOSAGE FORM, QID IN 1ST TRIMESTER CO-CODAMOL (EFFERVESCENT TABLET) 2 DOSAGE FORM (2 DOSAGE FORM, F
     Route: 048
  3. COCODAMOL [Suspect]
     Active Substance: ACETAMINOPHEN\CODEINE PHOSPHATE
     Dosage: 20 DOSAGE FORM, QD
     Route: 048
  4. ACETAMINOPHEN [Suspect]
     Active Substance: ACETAMINOPHEN
     Indication: Pain
     Route: 048
  5. ACETAMINOPHEN [Suspect]
     Active Substance: ACETAMINOPHEN
     Dosage: 8 DOSAGE FORM, QD (8 DF, QD (2 DF, 4/DAY) IN 1ST TRIMESTER
     Route: 048
  6. FENTANYL [Suspect]
     Active Substance: FENTANYL
     Indication: Pain
     Dosage: UNK, IN 1ST TRIMESTER
     Route: 062
  7. TRAMADOL [Suspect]
     Active Substance: TRAMADOL
     Indication: Pain
     Dosage: 2 DF, QD, IN 1ST TRIMESTER
     Route: 048
  8. TRAMADOL [Suspect]
     Active Substance: TRAMADOL
     Dosage: 2 DF, 4/DAY; DOSAGE FORM: UNSPECIFIED. [8 DOSAGE FORM, QD, IN 1ST TRIMESTER (8 DF, QD (2 DF, 4/DAY)]
     Route: 048
  9. TRAMADOL [Suspect]
     Active Substance: TRAMADOL
     Dosage: 2 DF, QD, IN 1ST TRIMESTER
     Route: 048
  10. TRAMADOL [Suspect]
     Active Substance: TRAMADOL
     Dosage: 8 DF, QD (2 DF, 4/DAY IN 1ST TRIMESTER)
     Route: 048
  11. COCODAMOL [Suspect]
     Active Substance: ACETAMINOPHEN\CODEINE PHOSPHATE
     Indication: Pain
     Dosage: 8 DOSAGE FORM, QD (8 DF, QD (2 DF, 4/DAY) IN 1ST TRIMESTER, CO-CODAMOL
     Route: 048
  12. COCODAMOL [Suspect]
     Active Substance: ACETAMINOPHEN\CODEINE PHOSPHATE
     Dosage: 2 DF, DAILY (2 DOSAGE FORM, 1/DAY) IN 1ST TRIMESTER
     Route: 048
  13. DURAGESIC [Suspect]
     Active Substance: FENTANYL
     Indication: Pain
     Dosage: UNK (TRANSDERMAL PATCH)
     Route: 065

REACTIONS (10)
  - Dependence [Recovered/Resolved]
  - Nausea [Recovered/Resolved]
  - Somnolence [Recovered/Resolved]
  - Amnesia [Recovered/Resolved]
  - Withdrawal syndrome [Recovered/Resolved]
  - Body dysmorphic disorder [Recovered/Resolved]
  - Drug abuse [Unknown]
  - Drug ineffective [Unknown]
  - Crying [Recovered/Resolved]
  - Maternal exposure during pregnancy [Recovered/Resolved]
